FAERS Safety Report 14993551 (Version 1)
Quarter: 2018Q2

REPORT INFORMATION
  Report Type: Spontaneous
  Country: FR (occurrence: FR)
  Receive Date: 20180611
  Receipt Date: 20180611
  Transmission Date: 20180711
  Serious: Yes (Hospitalization, Other)
  Sender: FDA-Public Use
  Company Number: FR-AUROBINDO-AUR-APL-2018-030348

PATIENT
  Age: 47 Year
  Sex: Male

DRUGS (4)
  1. PARACETAMOL [Suspect]
     Active Substance: ACETAMINOPHEN
     Indication: DYSURIA
     Dosage: UNK
     Route: 065
     Dates: start: 20140714
  2. NUROFEN                            /00109201/ [Suspect]
     Active Substance: IBUPROFEN
     Indication: DYSURIA
     Dosage: UNK
     Route: 048
     Dates: start: 20140714
  3. NUROFEN                            /00109201/ [Suspect]
     Active Substance: IBUPROFEN
     Indication: PYREXIA
     Dosage: UNK
     Route: 048
     Dates: start: 20140714, end: 20140718
  4. PARACETAMOL [Suspect]
     Active Substance: ACETAMINOPHEN
     Indication: PYREXIA
     Dosage: UNK
     Route: 065
     Dates: start: 20140714

REACTIONS (5)
  - Meningitis [Recovered/Resolved]
  - Photophobia [Recovered/Resolved]
  - Headache [Recovered/Resolved]
  - Pain [Recovered/Resolved]
  - Asthenia [Recovered/Resolved]

NARRATIVE: CASE EVENT DATE: 20140716
